FAERS Safety Report 9679548 (Version 1)
Quarter: 2013Q4

REPORT INFORMATION
  Report Type: Spontaneous
  Country: US (occurrence: US)
  Receive Date: 20131109
  Receipt Date: 20131109
  Transmission Date: 20140711
  Serious: No
  Sender: FDA-Public Use
  Company Number: US-SANOFI-AVENTIS-2013SA089935

PATIENT
  Age: 33 Year
  Sex: Female
  Weight: 127 kg

DRUGS (4)
  1. ALLEGRA-D [Suspect]
     Route: 048
     Dates: start: 20130903, end: 20130903
  2. ANTIBIOTICS [Concomitant]
     Route: 065
     Dates: end: 20130901
  3. MEDROL [Concomitant]
  4. ZITHROMAX [Concomitant]
     Indication: ANTIBIOTIC THERAPY
     Dates: start: 20130830, end: 20130901

REACTIONS (8)
  - Hypoaesthesia [Recovered/Resolved]
  - Drug hypersensitivity [Not Recovered/Not Resolved]
  - Feeling abnormal [Recovered/Resolved]
  - Mydriasis [Not Recovered/Not Resolved]
  - Nausea [Not Recovered/Not Resolved]
  - Sleep disorder [Not Recovered/Not Resolved]
  - Headache [Not Recovered/Not Resolved]
  - Dizziness [Recovered/Resolved]
